FAERS Safety Report 19772440 (Version 2)
Quarter: 2021Q3

REPORT INFORMATION
  Report Type: Report from Study
  Country: TR (occurrence: TR)
  Receive Date: 20210831
  Receipt Date: 20210831
  Transmission Date: 20211014
  Serious: Yes (Death, Other)
  Sender: FDA-Public Use
  Company Number: TR-JNJFOC-20210855398

PATIENT

DRUGS (5)
  1. REMICADE [Suspect]
     Active Substance: INFLIXIMAB
     Indication: BEHCET^S SYNDROME
     Dosage: 6?8 WEEKS
     Route: 042
  2. METHYLPREDNISOLONE. [Concomitant]
     Active Substance: METHYLPREDNISOLONE
     Route: 065
  3. AZATHIOPRINE. [Concomitant]
     Active Substance: AZATHIOPRINE
  4. MYCOPHENOLATE MOFETIL. [Concomitant]
     Active Substance: MYCOPHENOLATE MOFETIL
  5. PREDNISOLONE. [Concomitant]
     Active Substance: PREDNISOLONE
     Route: 065

REACTIONS (10)
  - Lung adenocarcinoma [Fatal]
  - Disseminated varicella zoster virus infection [Unknown]
  - Tuberculosis [Unknown]
  - Sarcoma [Unknown]
  - Product use in unapproved indication [Unknown]
  - Off label use [Unknown]
  - Systemic lupus erythematosus [Unknown]
  - Palmoplantar pustulosis [Unknown]
  - Hypersensitivity [Unknown]
  - Right ventricular failure [Fatal]
